FAERS Safety Report 12250446 (Version 2)
Quarter: 2016Q2

REPORT INFORMATION
  Report Type: Report from Study
  Country: BR (occurrence: BR)
  Receive Date: 20160408
  Receipt Date: 20160418
  Transmission Date: 20160815
  Serious: Yes (Death, Hospitalization, Other)
  Sender: FDA-Public Use
  Company Number: BR-ABBVIE-16K-020-1600249-00

PATIENT
  Age: 68 Year
  Sex: Female
  Weight: 69 kg

DRUGS (1)
  1. HUMIRA [Suspect]
     Active Substance: ADALIMUMAB
     Indication: RHEUMATOID ARTHRITIS
     Route: 058
     Dates: end: 201510

REACTIONS (10)
  - Pneumonia [Fatal]
  - Respiratory failure [Unknown]
  - Thrombosis [Unknown]
  - Infection [Fatal]
  - Productive cough [Not Recovered/Not Resolved]
  - Hypertension [Recovered/Resolved]
  - Lung cyst [Fatal]
  - Pulmonary fibrosis [Fatal]
  - Secretion discharge [Unknown]
  - Lip discolouration [Unknown]

NARRATIVE: CASE EVENT DATE: 201510
